FAERS Safety Report 21244789 (Version 2)
Quarter: 2022Q3

REPORT INFORMATION
  Report Type: Spontaneous
  Country: BR (occurrence: BR)
  Receive Date: 20220823
  Receipt Date: 20220825
  Transmission Date: 20221027
  Serious: Yes (Other)
  Sender: FDA-Public Use
  Company Number: BR-009507513-2208BRA008506

PATIENT
  Age: 40 Year
  Sex: Female
  Weight: 76 kg

DRUGS (5)
  1. KEYTRUDA [Suspect]
     Active Substance: PEMBROLIZUMAB
     Indication: Breast cancer
     Dosage: 200MG EVERY 21 DAYS FOR 17 CYCLES
     Route: 042
     Dates: start: 20220520, end: 20220520
  2. CARBOPLATIN [Suspect]
     Active Substance: CARBOPLATIN
     Indication: Breast cancer
     Dosage: 1.5 AUC, WEEKLY FOR 12 CYCLES.
     Route: 042
     Dates: start: 20220603, end: 20220603
  3. CARBOPLATIN [Suspect]
     Active Substance: CARBOPLATIN
     Dosage: 1.5 AUC, WEEKLY FOR 12 CYCLES.
     Route: 042
     Dates: start: 20220603, end: 20220603
  4. CARBOPLATIN [Suspect]
     Active Substance: CARBOPLATIN
     Dosage: 1.5 AUC, WEEKLY FOR 12 CYCLES.
     Route: 042
     Dates: start: 20220603, end: 20220603
  5. PACLITAXEL [Suspect]
     Active Substance: PACLITAXEL
     Indication: Breast cancer
     Dosage: 80MG/M2, WEEKLY, DURING 12 CYCLES
     Route: 042
     Dates: start: 20220603, end: 20220603

REACTIONS (2)
  - Neutropenia [Recovered/Resolved]
  - Leukopenia [Recovered/Resolved]

NARRATIVE: CASE EVENT DATE: 20220608
